FAERS Safety Report 5103208-5 (Version None)
Quarter: 2006Q3

REPORT INFORMATION
  Report Type: 
  Country: None (occurrence: None)
  Receive Date: 20060912
  Receipt Date: 20060912
  Transmission Date: 20061208
  Serious: No
  Sender: FDA-Public Use
  Company Number: None

PATIENT
  Age: 56 Year
  Sex: Male
  Weight: 92.9874 kg

DRUGS (2)
  1. ZOMETA [Suspect]
     Dosage: 4 MG IV
     Route: 042
     Dates: start: 20060612
  2. ZOMETA [Suspect]
     Dosage: 4 MG IV
     Route: 042
     Dates: start: 20060712

REACTIONS (2)
  - JAW DISORDER [None]
  - OSTEONECROSIS [None]
